FAERS Safety Report 9405812 (Version 2)
Quarter: 2013Q3

REPORT INFORMATION
  Report Type: Spontaneous
  Country: US (occurrence: US)
  Receive Date: 20130717
  Receipt Date: 20130808
  Transmission Date: 20140515
  Serious: Yes (Disabling)
  Sender: FDA-Public Use
  Company Number: US-GLAXOSMITHKLINE-A1031986A

PATIENT
  Age: 82 Year
  Sex: Male

DRUGS (10)
  1. ROPINIROLE [Suspect]
     Indication: PARKINSON^S DISEASE
     Dosage: 1.5MG THREE TIMES PER DAY
     Route: 048
     Dates: start: 20130526
  2. LANOXIN [Concomitant]
  3. COUMADIN [Concomitant]
  4. CARVEDILOL [Concomitant]
  5. FINASTERIDE [Concomitant]
  6. FLOMAX [Concomitant]
  7. SPIRONOLACTONE [Concomitant]
  8. BABY ASPIRIN [Concomitant]
  9. UNSPECIFIED MEDICATION [Concomitant]
  10. SINEMET CR [Concomitant]

REACTIONS (3)
  - Confusional state [Not Recovered/Not Resolved]
  - Speech disorder [Not Recovered/Not Resolved]
  - Somnolence [Not Recovered/Not Resolved]
